FAERS Safety Report 5678401-3 (Version None)
Quarter: 2008Q1

REPORT INFORMATION
  Report Type: 
  Country: None (occurrence: None)
  Receive Date: 20080320
  Receipt Date: 20080310
  Transmission Date: 20080703
  Serious: Yes (Other)
  Sender: FDA-Public Use
  Company Number: OSCN-PR-0803L-0155

PATIENT
  Age: 42 Year
  Sex: Male

DRUGS (2)
  1. OMNISCAN [Suspect]
     Indication: LYMPHADENOPATHY
     Dosage: 40 ML (0.26 MMOL/KG), SINGLE DOSE, I.V.
     Route: 042
     Dates: start: 20021101, end: 20021101
  2. ERYTHROPOIETIN (EPOGEN) [Concomitant]

REACTIONS (1)
  - NEPHROGENIC SYSTEMIC FIBROSIS [None]
